FAERS Safety Report 19427517 (Version 2)
Quarter: 2021Q2

REPORT INFORMATION
  Report Type: Report from Study
  Country: None (occurrence: US)
  Receive Date: 20210617
  Receipt Date: 20210618
  Transmission Date: 20210717
  Serious: Yes (Death, Hospitalization)
  Sender: FDA-Public Use
  Company Number: US-ABBVIE-21K-163-3950713-00

PATIENT
  Age: 94 Year
  Sex: Female

DRUGS (1)
  1. SYNTHROID [Suspect]
     Active Substance: LEVOTHYROXINE SODIUM
     Indication: HYPOTHYROIDISM
     Dosage: THERAPY STARTED MANY YEARS AGO
     Route: 048

REACTIONS (2)
  - COVID-19 [Fatal]
  - Abdominal sepsis [Fatal]

NARRATIVE: CASE EVENT DATE: 20201124
